FAERS Safety Report 5908780-0 (Version None)
Quarter: 2008Q4

REPORT INFORMATION
  Report Type: 
  Country: None (occurrence: None)
  Receive Date: 20081006
  Receipt Date: 20080926
  Transmission Date: 20090506
  Serious: Yes (Other)
  Sender: FDA-Public Use
  Company Number: PHHY2008JP19992

PATIENT
  Sex: Male
  Weight: 9 kg

DRUGS (4)
  1. ZADITEN [Suspect]
     Indication: DERMATITIS ALLERGIC
     Dosage: UNK
     Route: 048
     Dates: start: 20080829, end: 20080901
  2. ZADITEN [Suspect]
     Dosage: 2 ML, BID
     Route: 048
     Dates: start: 20080830, end: 20080831
  3. CELTECT [Suspect]
     Indication: PRURITUS
     Dosage: 0.5G
     Route: 048
     Dates: start: 20080905, end: 20080905
  4. STADERM [Suspect]
     Indication: RASH
     Dosage: UNK
     Route: 061
     Dates: start: 20080903, end: 20080911

REACTIONS (10)
  - ECZEMA [None]
  - ERYTHEMA MULTIFORME [None]
  - EYE SWELLING [None]
  - IMPETIGO [None]
  - PRURITUS GENERALISED [None]
  - PYREXIA [None]
  - RASH PAPULAR [None]
  - SKIN EXFOLIATION [None]
  - STAPHYLOCOCCAL INFECTION [None]
  - STEVENS-JOHNSON SYNDROME [None]
